FAERS Safety Report 15672749 (Version 1)
Quarter: 2018Q4

REPORT INFORMATION
  Report Type: Report from Study
  Country: US (occurrence: US)
  Receive Date: 20181129
  Receipt Date: 20181129
  Transmission Date: 20190205
  Serious: No
  Sender: FDA-Public Use
  Company Number: US-TESARO-US-2018TSO03463

PATIENT
  Sex: Female

DRUGS (4)
  1. ZEJULA [Suspect]
     Active Substance: NIRAPARIB
     Dosage: 300 MG, QD
     Route: 048
  2. ZEJULA [Suspect]
     Active Substance: NIRAPARIB
     Dosage: 300 MG, UNK
     Route: 048
     Dates: start: 20180625
  3. ZEJULA [Suspect]
     Active Substance: NIRAPARIB
     Indication: OVARIAN CANCER
     Dosage: 300 MG, QD
     Route: 048
     Dates: start: 20180625
  4. ZEJULA [Suspect]
     Active Substance: NIRAPARIB
     Dosage: 300 MG, UNK
     Route: 048

REACTIONS (15)
  - Seasonal allergy [Not Recovered/Not Resolved]
  - Nervousness [Unknown]
  - Muscle spasms [Not Recovered/Not Resolved]
  - Musculoskeletal stiffness [Not Recovered/Not Resolved]
  - Disease recurrence [Unknown]
  - Fatigue [Unknown]
  - Peripheral coldness [Not Recovered/Not Resolved]
  - Sinusitis [Recovered/Resolved]
  - Hypoaesthesia [Unknown]
  - Neuropathy peripheral [Not Recovered/Not Resolved]
  - Swelling [Not Recovered/Not Resolved]
  - Gastrointestinal ulcer [Not Recovered/Not Resolved]
  - Insomnia [Recovering/Resolving]
  - Facial pain [Not Recovered/Not Resolved]
  - Constipation [Not Recovered/Not Resolved]
